FAERS Safety Report 12498190 (Version 2)
Quarter: 2016Q4

REPORT INFORMATION
  Report Type: Spontaneous
  Country: US (occurrence: US)
  Receive Date: 20160627
  Receipt Date: 20161020
  Transmission Date: 20170207
  Serious: Yes (Hospitalization, Other)
  Sender: FDA-Public Use
  Company Number: US-009507513-1606USA010497

PATIENT
  Sex: Female
  Weight: 81.64 kg

DRUGS (2)
  1. NUVARING [Suspect]
     Active Substance: ETHINYL ESTRADIOL\ETONOGESTREL
     Indication: CYSTITIS INTERSTITIAL
     Dosage: UNK
     Route: 067
     Dates: start: 201405, end: 201407
  2. SPIRONOLACTONE. [Concomitant]
     Active Substance: SPIRONOLACTONE
     Indication: PRODUCT USED FOR UNKNOWN INDICATION
     Dosage: 1 DF, QM
     Route: 065
     Dates: start: 201312, end: 201406

REACTIONS (7)
  - Depression [Unknown]
  - Pneumonia [Recovering/Resolving]
  - Pleurisy [Unknown]
  - Off label use [Recovered/Resolved]
  - Flank pain [Unknown]
  - Pulmonary embolism [Unknown]
  - Maternal exposure before pregnancy [Recovered/Resolved]

NARRATIVE: CASE EVENT DATE: 201405
